FAERS Safety Report 5267460-8 (Version None)
Quarter: 2007Q1

REPORT INFORMATION
  Report Type: 
  Country: None (occurrence: None)
  Receive Date: 20070313
  Receipt Date: 20070301
  Transmission Date: 20070707
  Serious: Yes (Hospitalization)
  Sender: FDA-Public Use
  Company Number: 2007BI001305

PATIENT
  Age: 32 Year
  Sex: Female

DRUGS (15)
  1. AVONEX [Suspect]
     Indication: MULTIPLE SCLEROSIS
     Dosage: 30 UG;QW;IM
     Route: 030
     Dates: start: 20000901, end: 20030101
  2. AVONEX [Suspect]
     Indication: MULTIPLE SCLEROSIS
     Dosage: 30 UG;QW;IM
     Route: 030
     Dates: start: 20030101, end: 20050801
  3. AVONEX [Suspect]
     Indication: MULTIPLE SCLEROSIS
     Dosage: 30 UG;QW;IM
     Route: 030
     Dates: start: 20070125
  4. INSULIN [Concomitant]
  5. LABETALOL HCL [Concomitant]
  6. NIFEDIPINE [Concomitant]
  7. MOTRIN [Concomitant]
  8. ATIVAN [Concomitant]
  9. HYDROMORPHONE HCL [Concomitant]
  10. COLACE [Concomitant]
  11. KEFLEX [Concomitant]
  12. LASIX [Concomitant]
  13. LEVOXYL [Concomitant]
  14. PREVACID [Concomitant]
  15. PITOCIN [Concomitant]

REACTIONS (4)
  - CAESAREAN SECTION [None]
  - DRUG EXPOSURE DURING PREGNANCY [None]
  - POSTOPERATIVE FEVER [None]
  - PRE-ECLAMPSIA [None]
